FAERS Safety Report 20451338 (Version 1)
Quarter: 2022Q1

REPORT INFORMATION
  Report Type: Spontaneous
  Country: US (occurrence: None)
  Receive Date: 20220209
  Receipt Date: 20220209
  Transmission Date: 20220423
  Serious: Yes (Disabling)
  Sender: FDA-Public Use
  Company Number: None

PATIENT
  Age: 78 Year
  Sex: Male
  Weight: 80.74 kg

DRUGS (8)
  1. FARXIGA [Suspect]
     Active Substance: DAPAGLIFLOZIN PROPANEDIOL
     Indication: Cardiac failure congestive
     Dosage: FREQUENCY : DAILY;?
     Route: 048
     Dates: start: 20211115, end: 20211130
  2. EZETIMIBE [Concomitant]
     Active Substance: EZETIMIBE
  3. LIVALO [Concomitant]
     Active Substance: PITAVASTATIN CALCIUM
  4. TORSEMIDE [Concomitant]
     Active Substance: TORSEMIDE
  5. Praluent 150mg [Concomitant]
  6. PRASUGREL [Concomitant]
     Active Substance: PRASUGREL
  7. ASPIRIN [Concomitant]
     Active Substance: ASPIRIN
  8. One A Day multi Vitamin [Concomitant]

REACTIONS (6)
  - Cardiac murmur [None]
  - Dyspnoea [None]
  - Chest pain [None]
  - Chest discomfort [None]
  - Fatigue [None]
  - Headache [None]

NARRATIVE: CASE EVENT DATE: 20211115
